FAERS Safety Report 6087517-1 (Version None)
Quarter: 2009Q1

REPORT INFORMATION
  Report Type: 
  Country: None (occurrence: None)
  Receive Date: 20090223
  Receipt Date: 20090212
  Transmission Date: 20090719
  Serious: Yes (Death)
  Sender: FDA-Public Use
  Company Number: JP-ABBOTT-09P-087-0500614-00

PATIENT
  Age: 58 Year
  Sex: Male

DRUGS (12)
  1. LEUPROLIDE ACETATE [Suspect]
     Indication: PROSTATE CANCER STAGE IV
     Route: 058
     Dates: start: 20060207, end: 20060802
  2. RINDERON [Concomitant]
     Indication: PROSTATE CANCER STAGE IV
     Route: 048
     Dates: start: 20060221, end: 20060527
  3. FURTULON [Concomitant]
     Indication: PROSTATE CANCER STAGE IV
     Route: 048
     Dates: start: 20060323, end: 20060527
  4. TAXOL [Concomitant]
     Indication: PROSTATE CANCER STAGE IV
     Route: 041
     Dates: start: 20060605, end: 20061018
  5. PARAPLATIN [Concomitant]
     Indication: PROSTATE CANCER STAGE IV
     Route: 041
     Dates: start: 20060605, end: 20061011
  6. FAMOSTAGINE [Concomitant]
     Indication: GASTRIC ULCER
     Route: 048
     Dates: end: 20061029
  7. ASPIRIN [Concomitant]
     Indication: MYOCARDIAL INFARCTION
     Route: 048
     Dates: end: 20061225
  8. ITOROL [Concomitant]
     Indication: MYOCARDIAL INFARCTION
     Route: 048
     Dates: end: 20061225
  9. LASIX [Concomitant]
     Indication: MYOCARDIAL INFARCTION
     Route: 048
     Dates: end: 20061225
  10. SIGMART [Concomitant]
     Indication: MYOCARDIAL INFARCTION
     Route: 048
     Dates: end: 20061225
  11. NOVOLIN N [Concomitant]
     Indication: DRUG USE FOR UNKNOWN INDICATION
     Route: 050
  12. ANTICOAGULATION MEDICATION [Concomitant]
     Indication: DRUG USE FOR UNKNOWN INDICATION
     Route: 048

REACTIONS (5)
  - BACK PAIN [None]
  - BLOOD GLUCOSE ABNORMAL [None]
  - BONE LESION [None]
  - DISSEMINATED INTRAVASCULAR COAGULATION [None]
  - PROSTATE CANCER [None]
